FAERS Safety Report 9374416 (Version 1)
Quarter: 2013Q2

REPORT INFORMATION
  Report Type: Spontaneous
  Country: PL (occurrence: PL)
  Receive Date: 20130628
  Receipt Date: 20130628
  Transmission Date: 20140414
  Serious: Yes (Death)
  Sender: FDA-Public Use
  Company Number: PHHY2013PL066226

PATIENT
  Sex: Male

DRUGS (5)
  1. SIGNIFOR [Suspect]
     Indication: CUSHING^S SYNDROME
  2. HYDROCORTISONE [Concomitant]
     Dosage: 30 MG (20 + 10 MG), UNK
     Dates: start: 2003, end: 2008
  3. L-THYROXINE [Concomitant]
     Dosage: 50 UG
     Dates: start: 2003
  4. TESTOSTERONE [Concomitant]
     Dosage: 200 MG, BIW
     Route: 030
     Dates: start: 2003
  5. KETOKONAZOL [Concomitant]
     Indication: HYPERSENSITIVITY
     Dosage: 600 MG, DAILY

REACTIONS (1)
  - Disseminated intravascular coagulation [Fatal]
